FAERS Safety Report 5863706-3 (Version None)
Quarter: 2008Q3

REPORT INFORMATION
  Report Type: 
  Country: None (occurrence: None)
  Receive Date: 20080828
  Receipt Date: 20080822
  Transmission Date: 20090109
  Serious: Yes (Other)
  Sender: FDA-Public Use
  Company Number: US-PFIZER INC-2008071139

PATIENT
  Sex: Female
  Weight: 95.3 kg

DRUGS (4)
  1. NORVASC [Suspect]
     Indication: BLOOD PRESSURE
  2. CELEBREX [Suspect]
     Indication: ARTHRALGIA
  3. LIPITOR [Suspect]
     Indication: BLOOD CHOLESTEROL
  4. TOPROL-XL [Concomitant]

REACTIONS (3)
  - ARTHRALGIA [None]
  - BLOOD CHOLESTEROL ABNORMAL [None]
  - DIABETES MELLITUS [None]
